FAERS Safety Report 4356247-6 (Version None)
Quarter: 2004Q2

REPORT INFORMATION
  Report Type: 
  Country: None (occurrence: None)
  Receive Date: 20040511
  Receipt Date: 20040423
  Transmission Date: 20050107
  Serious: Yes (Other)
  Sender: FDA-Public Use
  Company Number: 2004027947

PATIENT
  Sex: Male

DRUGS (8)
  1. NORVASC [Suspect]
     Indication: HYPERTENSION
     Dosage: 5 MG (5 MG, 1 D), ORAL
     Route: 048
  2. URAPIDIL [Concomitant]
  3. KARVEA HCL (HYDROCHLOROTHIAZIDE, IRBESARTAN) [Concomitant]
  4. METOPROLOL SUCCINATE [Concomitant]
  5. LEVOTHYROXINE SODIUM [Concomitant]
  6. HMG COA REDUCTASE INHIBITORS [Concomitant]
  7. DESLORATADINE [Concomitant]
  8. LERCANIDIPINE [Concomitant]

REACTIONS (1)
  - ANGIONEUROTIC OEDEMA [None]
